FAERS Safety Report 7945736-0 (Version None)
Quarter: 2011Q4

REPORT INFORMATION
  Report Type: 
  Country: None (occurrence: None)
  Receive Date: 20111129
  Receipt Date: 20111116
  Transmission Date: 20120403
  Serious: Yes (Other)
  Sender: FDA-Public Use
  Company Number: US-ELI_LILLY_AND_COMPANY-US201111006330

PATIENT
  Age: 48 Year
  Sex: Female

DRUGS (5)
  1. CYMBALTA [Suspect]
     Dosage: 30 MG, UNKNOWN
  2. CYMBALTA [Suspect]
     Indication: BACK PAIN
     Dosage: 20 MG, UNKNOWN
  3. CYMBALTA [Suspect]
     Dosage: 60 MG, UNKNOWN
  4. CYMBALTA [Suspect]
     Dosage: 30 MG, UNKNOWN
  5. CYMBALTA [Suspect]
     Dosage: 20 MG, UNKNOWN

REACTIONS (2)
  - URTICARIA [None]
  - ANAPHYLACTIC SHOCK [None]
